FAERS Safety Report 5318160-7 (Version None)
Quarter: 2007Q1

REPORT INFORMATION
  Report Type: 
  Country: None (occurrence: None)
  Receive Date: 20070201
  Receipt Date: 20061026
  Transmission Date: 20070707
  Serious: Yes (Life-Threatening, Hospitalization)
  Sender: FDA-Public Use
  Company Number: MEDI-0005021

PATIENT
  Age: 71 Year
  Sex: Female
  Weight: 70.5 kg

DRUGS (7)
  1. ETHYOL [Suspect]
     Indication: CHEMOTHERAPY
     Dosage: 500 MG, 5 IN  5 D, INTRAVENOUS BOLUS
     Route: 040
     Dates: start: 20061010, end: 20061010
  2. ETHYOL [Suspect]
     Indication: RADIOTHERAPY
     Dosage: 500 MG, 5 IN  5 D, INTRAVENOUS BOLUS
     Route: 040
     Dates: start: 20061010, end: 20061010
  3. RADIATION THERAPY [Concomitant]
  4. LORTAB [Concomitant]
  5. POTASSIUM (POTASSIUM) [Concomitant]
  6. OVER-THE-COUNTER COUGH SYRUP [Concomitant]
  7. UNKNOWN ANXIETY MEDICATION [Concomitant]

REACTIONS (1)
  - CARDIO-RESPIRATORY ARREST [None]
